FAERS Safety Report 6942861-8 (Version None)
Quarter: 2010Q3

REPORT INFORMATION
  Report Type: 
  Country: None (occurrence: None)
  Receive Date: 20100826
  Receipt Date: 20100812
  Transmission Date: 20110219
  Serious: Yes (Hospitalization, Other)
  Sender: FDA-Public Use
  Company Number: US-ELI_LILLY_AND_COMPANY-US201007005286

PATIENT
  Sex: Male

DRUGS (5)
  1. CYMBALTA [Suspect]
     Indication: DEPRESSION
     Dosage: 60 MG, DAILY (1/D)
  2. METFORMIN HCL [Concomitant]
     Dosage: 500 MG, UNK
  3. GLIPIZIDE [Concomitant]
     Dosage: 10 MG, EACH MORNING
  4. GLIPIZIDE [Concomitant]
     Dosage: 5 MG, EACH EVENING
  5. PAXIL [Concomitant]

REACTIONS (7)
  - ABDOMINAL PAIN [None]
  - BLOOD GLUCOSE ABNORMAL [None]
  - CARDIAC DISORDER [None]
  - CEREBROVASCULAR ACCIDENT [None]
  - CHEST PAIN [None]
  - DRUG INEFFECTIVE [None]
  - MEMORY IMPAIRMENT [None]
